FAERS Safety Report 19853298 (Version 2)
Quarter: 2021Q3

REPORT INFORMATION
  Report Type: Spontaneous
  Country: US (occurrence: US)
  Receive Date: 20210919
  Receipt Date: 20210922
  Transmission Date: 20211014
  Serious: No
  Sender: FDA-Public Use
  Company Number: US-SA-2021SA307297

PATIENT
  Age: 45 Year
  Sex: Female

DRUGS (1)
  1. LANTUS SOLOSTAR [Suspect]
     Active Substance: INSULIN GLARGINE
     Indication: TYPE 2 DIABETES MELLITUS
     Dosage: 36 IU, QD
     Route: 065
     Dates: start: 2020

REACTIONS (4)
  - Blood glucose increased [Unknown]
  - Device issue [Unknown]
  - Drug dose omission by device [Unknown]
  - Visual impairment [Unknown]
